FAERS Safety Report 24881323 (Version 1)
Quarter: 2025Q1

REPORT INFORMATION
  Report Type: Spontaneous
  Country: FR (occurrence: FR)
  Receive Date: 20250124
  Receipt Date: 20250124
  Transmission Date: 20250408
  Serious: Yes (Hospitalization, Other)
  Sender: ROCHE
  Company Number: None

PATIENT
  Age: 60 Year
  Sex: Female
  Weight: 66 kg

DRUGS (16)
  1. VALGANCICLOVIR [Suspect]
     Active Substance: VALGANCICLOVIR
     Indication: Antiviral prophylaxis
     Dosage: 1 CP OF 450 MG
     Route: 048
     Dates: start: 20240307, end: 20240917
  2. CERTICAN [Suspect]
     Active Substance: EVEROLIMUS
     Indication: Prophylaxis against transplant rejection
     Route: 048
     Dates: start: 20231212, end: 20240923
  3. CERTICAN [Suspect]
     Active Substance: EVEROLIMUS
     Route: 048
     Dates: start: 20231212, end: 20240923
  4. PREDNISOLONE [Concomitant]
     Active Substance: PREDNISOLONE
     Dosage: 1 TABLET IN THE MORNING
     Route: 065
     Dates: start: 20240917
  5. CARVEDILOL [Concomitant]
     Active Substance: CARVEDILOL
     Route: 065
     Dates: start: 20240917
  6. NULOJIX [Concomitant]
     Active Substance: BELATACEPT
     Route: 065
     Dates: start: 20240313, end: 20240828
  7. FUROSEMIDE [Concomitant]
     Active Substance: FUROSEMIDE
     Dosage: MORNING
     Route: 065
     Dates: start: 20240917
  8. SPIRONOLACTONE [Concomitant]
     Active Substance: SPIRONOLACTONE
     Dosage: MORNING
     Route: 065
     Dates: start: 20240917
  9. APIXABAN [Concomitant]
     Active Substance: APIXABAN
     Route: 065
     Dates: start: 20240917
  10. LANTUS [Concomitant]
     Active Substance: INSULIN GLARGINE
     Dosage: IN THE EVENING
     Route: 065
     Dates: start: 20240917
  11. ARANESP [Concomitant]
     Active Substance: DARBEPOETIN ALFA
     Dosage: 1 INJECTION S/C PER WEEK
     Route: 065
     Dates: start: 20240917
  12. LANSOPRAZOLE [Concomitant]
     Active Substance: LANSOPRAZOLE
     Dosage: IN THE MORNING
     Route: 065
     Dates: start: 20240917
  13. FOLIC ACID [Concomitant]
     Active Substance: FOLIC ACID
     Dosage: MORNING
     Route: 065
     Dates: start: 20240917
  14. Minpara [Concomitant]
     Dosage: 90MG IN THE EVENING
     Route: 065
     Dates: start: 20240917
  15. ATOVAQUONE [Concomitant]
     Active Substance: ATOVAQUONE
     Route: 065
     Dates: start: 20240917
  16. ACETAMINOPHEN [Concomitant]
     Active Substance: ACETAMINOPHEN
     Route: 065
     Dates: start: 20240917

REACTIONS (7)
  - Pancytopenia [Recovered/Resolved]
  - Acute kidney injury [Unknown]
  - Sepsis [Unknown]
  - Staphylococcal bacteraemia [Unknown]
  - Sacroiliitis [Unknown]
  - Abscess [Unknown]
  - Lung disorder [Unknown]

NARRATIVE: CASE EVENT DATE: 20240901
